FAERS Safety Report 8941959 (Version 3)
Quarter: 2013Q2

REPORT INFORMATION
  Report Type: Report from Study
  Country: FR (occurrence: FR)
  Receive Date: 20121203
  Receipt Date: 20130401
  Transmission Date: 20140414
  Serious: Yes (Other)
  Sender: FDA-Public Use
  Company Number: FR-UCBSA-072223

PATIENT
  Age: 44 Year
  Sex: Female
  Weight: 65 kg

DRUGS (3)
  1. CIMZIA [Suspect]
     Indication: RHEUMATOID ARTHRITIS
     Dosage: 400MG EVERY TWO WEEKS, THEN 200MG EVERY TWO WEEKS
     Route: 058
     Dates: start: 20120910, end: 20121008
  2. IMETH [Concomitant]
     Indication: RHEUMATOID ARTHRITIS
     Route: 048
     Dates: start: 201012
  3. NAPROZYNE [Concomitant]
     Indication: RHEUMATOID ARTHRITIS
     Route: 048
     Dates: start: 201201

REACTIONS (4)
  - Urosepsis [Unknown]
  - Psoriasis [Unknown]
  - Rash vesicular [Recovered/Resolved]
  - Nausea [Not Recovered/Not Resolved]
